FAERS Safety Report 17626733 (Version 1)
Quarter: 2020Q2

REPORT INFORMATION
  Report Type: Spontaneous
  Country: None (occurrence: US)
  Receive Date: 20200405
  Receipt Date: 20200405
  Transmission Date: 20200713
  Serious: No
  Sender: FDA-Public Use
  Company Number: US-CEDIPROF, INC.-2082347

PATIENT
  Age: 48 Year
  Sex: Female

DRUGS (1)
  1. LEVO-T [Suspect]
     Active Substance: LEVOTHYROXINE SODIUM
     Indication: PRODUCT USED FOR UNKNOWN INDICATION

REACTIONS (10)
  - Alopecia [Unknown]
  - Skin burning sensation [Unknown]
  - Constipation [Unknown]
  - Pruritus [Unknown]
  - Periorbital swelling [Unknown]
  - Skin irritation [Unknown]
  - Drug ineffective [Unknown]
  - Skin exfoliation [Unknown]
  - Insomnia [Unknown]
  - Onychoclasis [Unknown]
